FAERS Safety Report 10661520 (Version 2)
Quarter: 2014Q4

REPORT INFORMATION
  Report Type: Report from Study
  Country: US (occurrence: US)
  Receive Date: 20141218
  Receipt Date: 20141218
  Transmission Date: 20150529
  Serious: Yes (Other)
  Sender: FDA-Public Use
  Company Number: PHEH2014US020257

PATIENT
  Age: 42 Year
  Sex: Female
  Weight: 70 kg

DRUGS (7)
  1. METAXALONE. [Concomitant]
     Active Substance: METAXALONE
     Indication: MUSCLE SPASMS
     Dosage: 800 MG,(1/2-1 TAB Q4H PRN)
     Route: 065
  2. GILENYA [Suspect]
     Active Substance: FINGOLIMOD HYDROCHLORIDE
     Indication: MULTIPLE SCLEROSIS
     Dosage: 0.5 MG, QD
     Route: 048
     Dates: start: 201312, end: 201407
  3. GILENYA [Suspect]
     Active Substance: FINGOLIMOD HYDROCHLORIDE
     Dosage: 0.5 MG, QD
     Dates: start: 201407
  4. B COMPLEX+C [Concomitant]
     Indication: PRODUCT USED FOR UNKNOWN INDICATION
     Dosage: 1 DF, QD
     Route: 048
  5. NORCO [Concomitant]
     Active Substance: ACETAMINOPHEN\HYDROCODONE BITARTRATE
     Indication: PAIN
     Dosage: 1 DF (5-325 MG), PRN (EVERY 12 HOURS AS NEEDED)
     Route: 048
  6. OXYCODONE HCL [Concomitant]
     Active Substance: OXYCODONE HYDROCHLORIDE
     Indication: PRODUCT USED FOR UNKNOWN INDICATION
     Dosage: 1 DF, QID
     Route: 048
  7. SERTRALINE [Concomitant]
     Active Substance: SERTRALINE HYDROCHLORIDE
     Indication: DEPRESSION
     Dosage: 1 DF, QD (NIGHT)
     Route: 048

REACTIONS (6)
  - Alopecia [Recovering/Resolving]
  - Crying [Unknown]
  - Diarrhoea [Not Recovered/Not Resolved]
  - Emotional distress [Unknown]
  - Suicidal ideation [Unknown]
  - Faecal incontinence [Not Recovered/Not Resolved]

NARRATIVE: CASE EVENT DATE: 201406
